FAERS Safety Report 22104041 (Version 1)
Quarter: 2023Q1

REPORT INFORMATION
  Report Type: Spontaneous
  Country: US (occurrence: US)
  Receive Date: 20230316
  Receipt Date: 20230316
  Transmission Date: 20230417
  Serious: Yes (Other)
  Sender: FDA-Public Use
  Company Number: US-drreddys-LIT/USA/23/0162348

PATIENT
  Age: 36 Week
  Sex: Male

DRUGS (3)
  1. DOBUTAMINE HYDROCHLORIDE [Suspect]
     Active Substance: DOBUTAMINE HYDROCHLORIDE
     Indication: Septic shock
  2. EPINEPHRINE [Suspect]
     Active Substance: EPINEPHRINE
     Indication: Septic shock
  3. NOREPINEPHRINE [Suspect]
     Active Substance: NOREPINEPHRINE
     Indication: Septic shock

REACTIONS (2)
  - Ischaemia [Unknown]
  - Product use in unapproved indication [Unknown]
